FAERS Safety Report 6648684-1 (Version None)
Quarter: 2010Q1

REPORT INFORMATION
  Report Type: 
  Country: None (occurrence: None)
  Receive Date: 20100324
  Receipt Date: 20090616
  Transmission Date: 20100710
  Serious: Yes (Other)
  Sender: FDA-Public Use
  Company Number: PHHY2009TW60867

PATIENT

DRUGS (1)
  1. GLEEVEC [Suspect]
     Indication: CHRONIC MYELOID LEUKAEMIA
     Dosage: LESS THAN 400 MG

REACTIONS (4)
  - ASTHENIA [None]
  - CATARACT OPERATION [None]
  - DECREASED APPETITE [None]
  - HEADACHE [None]
